FAERS Safety Report 20838426 (Version 1)
Quarter: 2022Q2

REPORT INFORMATION
  Report Type: Other
  Country: EG (occurrence: EG)
  Receive Date: 20220517
  Receipt Date: 20220517
  Transmission Date: 20220721
  Serious: Yes (Other)
  Sender: FDA-Public Use
  Company Number: EG-002147023-NVSC2022EG107910

PATIENT
  Age: 47 Year
  Sex: Female

DRUGS (10)
  1. XOLAIR [Suspect]
     Active Substance: OMALIZUMAB
     Indication: Urticaria
     Dosage: 150 MG, (EVERY 4 WEEKS), FOR 4 MONTHS AS PER HCP
     Route: 058
     Dates: start: 20201217, end: 20220507
  2. XOLAIR [Suspect]
     Active Substance: OMALIZUMAB
     Dosage: 150 MG, BIW, (FOR 6 MONTHS AS PER HCP)
     Route: 058
  3. XOLAIR [Suspect]
     Active Substance: OMALIZUMAB
     Dosage: 2 DOSAGE FORM (EVERY 4 WEEKS), (FOR 7 MONTHS AS PER HCP)
     Route: 058
  4. ALLEVO [LEVOCETIRIZINE DIHYDROCHLORIDE] [Concomitant]
     Indication: Urticaria
     Dosage: 1 DOSAGE FORM, QD
     Route: 048
     Dates: start: 202011
  5. EVASTINE [Concomitant]
     Indication: Urticaria
     Dosage: 1 DOSAGE FORM, QD
     Route: 048
     Dates: start: 202011
  6. FAMOTIDINE [Concomitant]
     Active Substance: FAMOTIDINE
     Indication: Urticaria
     Dosage: 1 DOSAGE FORM, QD
     Route: 048
     Dates: start: 202011
  7. PHENIRAMINE [Concomitant]
     Active Substance: PHENIRAMINE
     Indication: Urticaria
     Dosage: UNK, WHEN NEEDED ACCORDING TO HER CASE SHE CAN REACH 4
     Route: 065
     Dates: start: 202011
  8. BISOPROLOL FUMARATE [Concomitant]
     Active Substance: BISOPROLOL FUMARATE
     Indication: Blood pressure increased
     Dosage: 1 DOSAGE FORM, QD
     Route: 048
     Dates: start: 202008, end: 202011
  9. BISOPROLOL FUMARATE [Concomitant]
     Active Substance: BISOPROLOL FUMARATE
     Dosage: 1 DOSAGE FORM, BID
     Route: 048
     Dates: start: 202011
  10. ACETAMINOPHEN [Concomitant]
     Active Substance: ACETAMINOPHEN
     Indication: Headache
     Dosage: UNK, WHEN NEEDED (SHE STATED THAT ITS VALID TO TAKE 6 TABS PER
     Route: 065
     Dates: start: 20201217

REACTIONS (9)
  - Swelling face [Not Recovered/Not Resolved]
  - Insomnia [Not Recovered/Not Resolved]
  - Rhinorrhoea [Not Recovered/Not Resolved]
  - Blood pressure increased [Not Recovered/Not Resolved]
  - Erythema [Not Recovered/Not Resolved]
  - Urticaria [Not Recovered/Not Resolved]
  - Arthralgia [Not Recovered/Not Resolved]
  - Headache [Not Recovered/Not Resolved]
  - Therapeutic response delayed [Not Recovered/Not Resolved]

NARRATIVE: CASE EVENT DATE: 20201217
